FAERS Safety Report 4455075-0 (Version None)
Quarter: 2004Q3

REPORT INFORMATION
  Report Type: 
  Country: None (occurrence: None)
  Receive Date: 20040917
  Receipt Date: 20040908
  Transmission Date: 20050211
  Serious: Yes (Other)
  Sender: FDA-Public Use
  Company Number: KII-2000-0002213

PATIENT
  Sex: Female

DRUGS (1)
  1. OXYCONTIN [Suspect]

REACTIONS (5)
  - DIZZINESS [None]
  - FALL [None]
  - HIP FRACTURE [None]
  - PNEUMONIA [None]
  - STAPHYLOCOCCAL INFECTION [None]
